FAERS Safety Report 20852023 (Version 1)
Quarter: 2022Q2

REPORT INFORMATION
  Report Type: Spontaneous
  Country: US (occurrence: US)
  Receive Date: 20220520
  Receipt Date: 20220520
  Transmission Date: 20220721
  Serious: Yes (Other)
  Sender: FDA-Public Use
  Company Number: US-Blueprint Medicines Corporation-SP-US-2022-001488

PATIENT
  Sex: Female

DRUGS (1)
  1. AYVAKIT [Suspect]
     Active Substance: AVAPRITINIB
     Indication: Systemic mastocytosis
     Route: 048
     Dates: start: 20180122

REACTIONS (6)
  - Biopsy kidney [Unknown]
  - Glomerular filtration rate decreased [Unknown]
  - Blood creatine increased [Unknown]
  - Hair colour changes [Unknown]
  - Drug ineffective [Unknown]
  - Lung disorder [Unknown]
